FAERS Safety Report 5055450-X (Version None)
Quarter: 2006Q3

REPORT INFORMATION
  Report Type: 
  Country: None (occurrence: None)
  Receive Date: 20060714
  Receipt Date: 20060626
  Transmission Date: 20061208
  Serious: Yes (Hospitalization)
  Sender: FDA-Public Use
  Company Number: DE200606005441

PATIENT
  Age: 37 Year
  Sex: Male

DRUGS (3)
  1. CYMBALTA [Suspect]
     Indication: DEPRESSION
     Dosage: 60 + 90 MG, DAILY (1/D), ORAL - SEE IMAGE
     Route: 048
     Dates: start: 20051001
  2. CYMBALTA [Suspect]
     Indication: DEPRESSION
     Dosage: 60 + 90 MG, DAILY (1/D), ORAL - SEE IMAGE
     Route: 048
     Dates: start: 20060202
  3. CYMBALTA [Suspect]
     Indication: DEPRESSION
     Dosage: 60 + 90 MG, DAILY (1/D), ORAL - SEE IMAGE
     Route: 048
     Dates: start: 20060215

REACTIONS (1)
  - RESTLESS LEGS SYNDROME [None]
